FAERS Safety Report 12403602 (Version 1)
Quarter: 2016Q2

REPORT INFORMATION
  Report Type: Spontaneous
  Country: US (occurrence: US)
  Receive Date: 20160525
  Receipt Date: 20160525
  Transmission Date: 20160815
  Serious: Yes (Other)
  Sender: FDA-Public Use
  Company Number: US-BAYER-2016-095442

PATIENT
  Age: 76 Year
  Sex: Female
  Weight: 60.77 kg

DRUGS (1)
  1. RID SHAMPOO [Suspect]
     Active Substance: PIPERONYL BUTOXIDE\PYRETHRIN I
     Indication: LICE INFESTATION
     Dosage: 1 DF, ONCE

REACTIONS (4)
  - Blood blister [None]
  - Macular degeneration [None]
  - Ear pain [None]
  - Pruritus [None]
